FAERS Safety Report 8117206-0 (Version None)
Quarter: 2012Q1

REPORT INFORMATION
  Report Type: 
  Country: None (occurrence: None)
  Receive Date: 20120206
  Receipt Date: 20120130
  Transmission Date: 20120608
  Serious: Yes (Other)
  Sender: FDA-Public Use
  Company Number: BR-ASTRAZENECA-2012SE06869

PATIENT
  Age: 69 Year
  Sex: Female

DRUGS (2)
  1. SYMBICORT [Suspect]
     Dosage: 160/4.5 MCG UNKNOWN FREQUENCY
     Route: 055
  2. NEXIUM [Suspect]
     Route: 048

REACTIONS (1)
  - INFARCTION [None]
